FAERS Safety Report 13629445 (Version 1)
Quarter: 2017Q2

REPORT INFORMATION
  Report Type: Report from Study
  Country: JP (occurrence: JP)
  Receive Date: 20170608
  Receipt Date: 20170608
  Transmission Date: 20170830
  Serious: Yes (Hospitalization)
  Sender: FDA-Public Use
  Company Number: JP-DSJP-DSJ-2017-116966

PATIENT

DRUGS (23)
  1. EFIENT [Suspect]
     Active Substance: PRASUGREL HYDROCHLORIDE
     Dosage: 3.75 MG, QD
     Route: 048
     Dates: start: 20170224
  2. BISOPROLOL                         /00802602/ [Concomitant]
     Active Substance: BISOPROLOL
     Dosage: 0.625MG/DAY
     Route: 048
     Dates: start: 20170419, end: 20170426
  3. SAMSCA [Concomitant]
     Active Substance: TOLVAPTAN
     Dosage: 3.75MG/DAY
     Route: 048
     Dates: start: 20170511
  4. SLOW-K [Concomitant]
     Active Substance: POTASSIUM CHLORIDE
     Dosage: 2400MG/DAY
     Route: 048
     Dates: start: 20170210, end: 20170217
  5. LIPITOR [Concomitant]
     Active Substance: ATORVASTATIN CALCIUM
     Dosage: 10MG/DAY
     Route: 048
  6. LIPIDIL [Concomitant]
     Active Substance: FENOFIBRATE
     Dosage: 80MG/DAY
     Route: 048
     Dates: end: 20170307
  7. ENALAPRIL                          /00574902/ [Concomitant]
     Active Substance: ENALAPRIL
     Dosage: 5MG/DAY
     Route: 048
     Dates: start: 20170218
  8. MYOCOR [Concomitant]
     Active Substance: NITROGLYCERIN
     Dosage: 24MG/DAY
     Route: 042
     Dates: start: 20170418, end: 20170420
  9. SOLDACTONE [Concomitant]
     Active Substance: CANRENOATE POTASSIUM
     Dosage: 100MG/DAY
     Route: 042
     Dates: start: 20170419, end: 20170425
  10. BAYASPIRIN [Suspect]
     Active Substance: ASPIRIN
     Dosage: 100MG/DAY
     Route: 048
     Dates: start: 20170224, end: 20170511
  11. BISOPROLOL                         /00802602/ [Concomitant]
     Active Substance: BISOPROLOL
     Dosage: 1.25MG/DAY
     Route: 048
     Dates: start: 20170214, end: 20170418
  12. BISOPROLOL                         /00802602/ [Concomitant]
     Active Substance: BISOPROLOL
     Dosage: 1.25MG/DAY
     Route: 048
     Dates: start: 20170427, end: 20170519
  13. EQUA [Concomitant]
     Active Substance: VILDAGLIPTIN
     Dosage: 100MG/DAY
     Route: 048
     Dates: start: 20170426
  14. NOVOLIN R [Concomitant]
     Active Substance: INSULIN HUMAN
     Dosage: 24IU/DAY
     Route: 058
     Dates: end: 20170417
  15. HANP FOR INJECTION 1000 [Concomitant]
     Dosage: 2000UG/DAY
     Route: 042
     Dates: start: 20170421, end: 20170425
  16. EDOXABAN [Suspect]
     Active Substance: EDOXABAN TOSYLATE
     Indication: ATRIAL FIBRILLATION
     Dosage: 30 MG, QD
     Route: 048
     Dates: start: 20170217
  17. AZOSEMIDE [Concomitant]
     Active Substance: AZOSEMIDE
     Dosage: 60MG/DAY
     Route: 048
     Dates: start: 20170426
  18. NOVOLIN R [Concomitant]
     Active Substance: INSULIN HUMAN
     Dosage: 14IU/DAY
     Dates: start: 20170524
  19. BISOPROLOL                         /00802602/ [Concomitant]
     Active Substance: BISOPROLOL
     Dosage: 1.875MG/DAY
     Route: 048
     Dates: start: 20170520
  20. SAMSCA [Concomitant]
     Active Substance: TOLVAPTAN
     Dosage: 7.5MG/DAY
     Route: 048
     Dates: start: 20170419, end: 20170510
  21. SPIRONOLACTONE. [Concomitant]
     Active Substance: SPIRONOLACTONE
     Dosage: 50MG/DAY
     Route: 048
     Dates: start: 20170426
  22. ALFACALCIDOL [Concomitant]
     Active Substance: ALFACALCIDOL
     Dosage: 0.5UG/DAY
     Route: 048
  23. FUROSEMIDE. [Concomitant]
     Active Substance: FUROSEMIDE
     Dosage: 20MG/DAY
     Route: 042
     Dates: start: 20170418, end: 20170425

REACTIONS (2)
  - Cardiac failure acute [Recovered/Resolved]
  - Haemoptysis [Recovered/Resolved]

NARRATIVE: CASE EVENT DATE: 20170418
